FAERS Safety Report 24155450 (Version 4)
Quarter: 2024Q3

REPORT INFORMATION
  Report Type: Report from Study
  Country: US (occurrence: US)
  Receive Date: 20240731
  Receipt Date: 20240908
  Transmission Date: 20241016
  Serious: Yes (Hospitalization)
  Sender: ROCHE
  Company Number: US-ROCHE-10000035226

PATIENT
  Age: 56 Year
  Sex: Male
  Weight: 86.5 kg

DRUGS (11)
  1. OCRELIZUMAB [Suspect]
     Active Substance: OCRELIZUMAB
     Indication: Multiple sclerosis
     Route: 065
     Dates: start: 20180417
  2. OCRELIZUMAB [Suspect]
     Active Substance: OCRELIZUMAB
     Route: 065
  3. CLADRIBINE [Suspect]
     Active Substance: CLADRIBINE
     Indication: Multiple sclerosis
     Route: 065
     Dates: start: 20201016, end: 20201020
  4. CLADRIBINE [Suspect]
     Active Substance: CLADRIBINE
     Route: 065
     Dates: start: 20211117
  5. DICLOFENAC [Concomitant]
     Active Substance: DICLOFENAC
     Dates: start: 20201027
  6. BACLOFEN [Concomitant]
     Active Substance: BACLOFEN
     Dates: start: 20160915
  7. OMEPRAZOLE [Concomitant]
     Active Substance: OMEPRAZOLE
     Dates: start: 20190206
  8. CHOLECALCIFEROL [Concomitant]
     Active Substance: CHOLECALCIFEROL
     Dates: start: 20180227
  9. AMLODIPINE [Concomitant]
     Active Substance: AMLODIPINE BESYLATE
     Dates: start: 20211007, end: 20230202
  10. APIXABAN [Concomitant]
     Active Substance: APIXABAN
     Dates: start: 20220311
  11. DOCUSATE SODIUM [Concomitant]
     Active Substance: DOCUSATE SODIUM
     Dates: start: 20211105

REACTIONS (1)
  - Urinary tract infection [Recovered/Resolved]

NARRATIVE: CASE EVENT DATE: 20240703
